FAERS Safety Report 25320161 (Version 2)
Quarter: 2025Q2

REPORT INFORMATION
  Report Type: Report from Study
  Country: GR (occurrence: GR)
  Receive Date: 20250515
  Receipt Date: 20250603
  Transmission Date: 20250717
  Serious: Yes (Death, Hospitalization)
  Sender: SANDOZ
  Company Number: None

PATIENT
  Age: 19 Year
  Sex: Male

DRUGS (4)
  1. CORTISONE [Suspect]
     Active Substance: CORTISONE
     Indication: Hypopituitarism
     Route: 065
  2. OMNITROPE [Suspect]
     Active Substance: SOMATROPIN
     Indication: Growth hormone deficiency
     Route: 058
     Dates: start: 20230517
  3. OMNITROPE [Suspect]
     Active Substance: SOMATROPIN
     Indication: Hypopituitarism
  4. TESTOSTERONE [Suspect]
     Active Substance: TESTOSTERONE
     Indication: Hypopituitarism
     Route: 065

REACTIONS (4)
  - Viral infection [Fatal]
  - Product use complaint [Unknown]
  - Wrong technique in device usage process [Unknown]
  - Device occlusion [Unknown]

NARRATIVE: CASE EVENT DATE: 20230601
